FAERS Safety Report 5195068-1 (Version None)
Quarter: 2006Q4

REPORT INFORMATION
  Report Type: 
  Country: None (occurrence: None)
  Receive Date: 20061229
  Receipt Date: 20061221
  Transmission Date: 20070319
  Serious: Yes (Hospitalization, Other)
  Sender: FDA-Public Use
  Company Number: US-JNJFOC-20061206438

PATIENT
  Sex: Female

DRUGS (9)
  1. INFLIXIMAB [Suspect]
     Indication: RHEUMATOID ARTHRITIS
  2. COZAAR [Concomitant]
  3. THEOPHYLLINE [Concomitant]
  4. OXYGEN THERAPY [Concomitant]
  5. TRAZODONE HCL [Concomitant]
  6. VALIUM [Concomitant]
  7. ATROVENT [Concomitant]
  8. NEXIUM [Concomitant]
  9. MULTI-VITAMIN [Concomitant]

REACTIONS (2)
  - COMA [None]
  - VIRAL UPPER RESPIRATORY TRACT INFECTION [None]
